FAERS Safety Report 8528982-7 (Version None)
Quarter: 2012Q3

REPORT INFORMATION
  Report Type: 
  Country: None (occurrence: None)
  Receive Date: 20120723
  Receipt Date: 20120717
  Transmission Date: 20120928
  Serious: No
  Sender: FDA-Public Use
  Company Number: US-PFIZER INC-2012173429

PATIENT
  Sex: Female
  Weight: 49.9 kg

DRUGS (1)
  1. LYRICA [Suspect]
     Indication: SCIATICA
     Dosage: 100 MG, 3X/DAY
     Route: 048

REACTIONS (1)
  - ALOPECIA [None]
